FAERS Safety Report 8949424 (Version 1)
Quarter: 2012Q4

REPORT INFORMATION
  Report Type: 
  Country: US (occurrence: US)
  Receive Date: 20121206
  Receipt Date: 20121206
  Transmission Date: 20130627
  Serious: No
  Sender: FDA-Public Use
  Company Number: US-009507513-1212USA000772

PATIENT
  Age: 82 Year
  Sex: Male

DRUGS (3)
  1. JANUVIA [Suspect]
     Indication: TYPE 2 DIABETES MELLITUS
     Dosage: 100 mg, once daily in the afternoon
     Route: 048
     Dates: start: 20121008, end: 20121129
  2. GLUCOPHAGE [Concomitant]
  3. DIABETA [Concomitant]

REACTIONS (2)
  - Vision blurred [Not Recovered/Not Resolved]
  - Eye discharge [Not Recovered/Not Resolved]
